FAERS Safety Report 7405409-X (Version None)
Quarter: 2011Q2

REPORT INFORMATION
  Report Type: 
  Country: None (occurrence: None)
  Receive Date: 20110411
  Receipt Date: 20110330
  Transmission Date: 20111010
  Serious: Yes (Hospitalization)
  Sender: FDA-Public Use
  Company Number: FR-JNJFOC-20100807931

PATIENT
  Sex: Male

DRUGS (12)
  1. CONTRAMAL [Suspect]
     Indication: HEADACHE
     Route: 042
  2. ACETAMINOPHEN AND TRAMADOL HCL [Suspect]
     Indication: HEADACHE
     Route: 048
  3. AVLOCARDYL [Concomitant]
     Route: 048
  4. SEROPLEX [Concomitant]
     Route: 048
  5. ACETAMINOPHEN [Concomitant]
     Route: 048
  6. NEXIUM [Concomitant]
     Route: 048
  7. PERFALGAN [Concomitant]
     Indication: HEADACHE
     Route: 042
  8. TOPIRAMATE [Suspect]
     Indication: PRODUCT USED FOR UNKNOWN INDICATION
     Route: 048
  9. CRESTOR [Concomitant]
     Route: 048
  10. CREON [Concomitant]
     Dosage: 12000 IU
     Route: 048
  11. DOGMATIL [Concomitant]
     Route: 048
  12. HUMALOG [Concomitant]
     Indication: TYPE 1 DIABETES MELLITUS
     Dosage: 32 IU
     Route: 058

REACTIONS (1)
  - PANCREATITIS ACUTE [None]
